FAERS Safety Report 6369528-1 (Version None)
Quarter: 2009Q3

REPORT INFORMATION
  Report Type: 
  Country: None (occurrence: None)
  Receive Date: 20090917
  Receipt Date: 20090911
  Transmission Date: 20100115
  Serious: Yes (Hospitalization)
  Sender: FDA-Public Use
  Company Number: 2009010012

PATIENT

DRUGS (1)
  1. NUVIGIL [Suspect]
     Dosage: 150 MG (150 MG, 1 IN 1 D), ORAL
     Route: 048

REACTIONS (4)
  - DRUG ERUPTION [None]
  - EXCORIATION [None]
  - HAEMORRHAGE [None]
  - OEDEMA PERIPHERAL [None]
